FAERS Safety Report 4438975-7 (Version None)
Quarter: 2004Q3

REPORT INFORMATION
  Report Type: 
  Country: None (occurrence: None)
  Receive Date: 20040830
  Receipt Date: 20040817
  Transmission Date: 20050211
  Serious: Yes (Life-Threatening, Hospitalization, Other)
  Sender: FDA-Public Use
  Company Number: 2004056541

PATIENT
  Age: 27 Year
  Sex: Male

DRUGS (2)
  1. ATARAX [Suspect]
     Indication: SUICIDE ATTEMPT
     Dosage: 375 MG, ORAL
     Route: 048
     Dates: start: 20040725, end: 20040725
  2. PROPRANOLOL [Suspect]
     Indication: SUICIDE ATTEMPT
     Dosage: 100 DF,ORAL
     Route: 048
     Dates: start: 20040725, end: 20040725

REACTIONS (7)
  - BLOOD PRESSURE SYSTOLIC DECREASED [None]
  - CIRCULATORY COLLAPSE [None]
  - CONVULSION [None]
  - DRUG INEFFECTIVE [None]
  - POSTICTAL STATE [None]
  - SUICIDE ATTEMPT [None]
  - VOMITING [None]
